FAERS Safety Report 16369471 (Version 1)
Quarter: 2019Q2

REPORT INFORMATION
  Report Type: Spontaneous
  Country: US (occurrence: US)
  Receive Date: 20190529
  Receipt Date: 20190529
  Transmission Date: 20190711
  Serious: Yes (Other)
  Sender: FDA-Public Use
  Company Number: US-AMGEN-USASP2019082447

PATIENT
  Age: 58 Year
  Sex: Female

DRUGS (2)
  1. REPATHA [Suspect]
     Active Substance: EVOLOCUMAB
     Indication: MYALGIA
  2. REPATHA [Suspect]
     Active Substance: EVOLOCUMAB
     Indication: HYPERLIPIDAEMIA
     Dosage: 140 MILLIGRAM PER MILLILITRE, Q2WK
     Route: 065

REACTIONS (7)
  - Rash pruritic [Unknown]
  - Swelling face [Unknown]
  - Swelling [Unknown]
  - Pruritus [Unknown]
  - Pain in extremity [Unknown]
  - Asthenia [Unknown]
  - Throat irritation [Unknown]

NARRATIVE: CASE EVENT DATE: 201905
